FAERS Safety Report 17106132 (Version 2)
Quarter: 2020Q1

REPORT INFORMATION
  Report Type: Spontaneous
  Country: US (occurrence: US)
  Receive Date: 20191203
  Receipt Date: 20200123
  Transmission Date: 20200409
  Serious: Yes (Hospitalization)
  Sender: FDA-Public Use
  Company Number: US-ASTRAZENECA-2019SF70500

PATIENT
  Age: 63 Day
  Sex: Male
  Weight: 6.6 kg

DRUGS (2)
  1. SYNAGIS [Suspect]
     Active Substance: PALIVIZUMAB
     Indication: ANTIVIRAL PROPHYLAXIS
     Dosage: 80.0MG UNKNOWN
     Route: 030
     Dates: start: 20191122
  2. SYNAGIS [Suspect]
     Active Substance: PALIVIZUMAB
     Indication: ANTIVIRAL PROPHYLAXIS
     Dosage: 90 UNKNOWN
     Route: 030
     Dates: start: 20191223

REACTIONS (5)
  - Dyspnoea [Unknown]
  - Pulmonary congestion [Unknown]
  - Pyrexia [Unknown]
  - Heart rate abnormal [Not Recovered/Not Resolved]
  - Tachycardia [Unknown]

NARRATIVE: CASE EVENT DATE: 20191122
